FAERS Safety Report 9444221 (Version 1)
Quarter: 2013Q3

REPORT INFORMATION
  Report Type: Report from Study
  Country: VE (occurrence: VE)
  Receive Date: 20130807
  Receipt Date: 20130807
  Transmission Date: 20140515
  Serious: Yes (Hospitalization, Other)
  Sender: FDA-Public Use
  Company Number: PHHY2013VE060638

PATIENT
  Age: 52 Year
  Sex: Female

DRUGS (3)
  1. TASIGNA [Suspect]
     Indication: CHRONIC MYELOID LEUKAEMIA
     Dosage: 800 MG, DAILY
     Route: 048
     Dates: start: 2010, end: 201211
  2. TASIGNA [Suspect]
     Dosage: UNK
     Route: 048
     Dates: end: 201301
  3. TASIGNA [Suspect]
     Dosage: UNK
     Route: 048

REACTIONS (7)
  - Pancreatic disorder [Recovering/Resolving]
  - Liver disorder [Recovering/Resolving]
  - Gallbladder disorder [Recovering/Resolving]
  - Leukaemia recurrent [Not Recovered/Not Resolved]
  - Chronic myeloid leukaemia [Not Recovered/Not Resolved]
  - Rash [Recovered/Resolved]
  - Hypersensitivity [Recovering/Resolving]
